FAERS Safety Report 11960862 (Version 2)
Quarter: 2016Q1

REPORT INFORMATION
  Report Type: Report from Study
  Country: US (occurrence: US)
  Receive Date: 20160126
  Receipt Date: 20160129
  Transmission Date: 20160526
  Serious: Yes (Other)
  Sender: FDA-Public Use
  Company Number: US-ABBVIE-15K-163-1374712-00

PATIENT
  Age: 30 Year
  Sex: Female
  Weight: 63.56 kg

DRUGS (11)
  1. OMEPRAZOLE. [Concomitant]
     Active Substance: OMEPRAZOLE
     Indication: GASTROOESOPHAGEAL REFLUX DISEASE
  2. HUMIRA [Suspect]
     Active Substance: ADALIMUMAB
     Dosage: TWO WEEKS AFTER THE 80MG DOSE
     Route: 058
     Dates: start: 2012
  3. LIALDA [Concomitant]
     Active Substance: MESALAMINE
     Indication: COLITIS ULCERATIVE
  4. MULTIVITAMIN [Concomitant]
     Active Substance: VITAMINS
     Indication: PRODUCT USED FOR UNKNOWN INDICATION
  5. HUMIRA [Suspect]
     Active Substance: ADALIMUMAB
     Indication: COLITIS ULCERATIVE
     Route: 058
     Dates: start: 201211, end: 201211
  6. HUMIRA [Suspect]
     Active Substance: ADALIMUMAB
     Dosage: TWO WEEKS AFTER THE 160MG DOSE
     Route: 058
     Dates: start: 2012, end: 2012
  7. VITAMIN D [Concomitant]
     Active Substance: CHOLECALCIFEROL
     Indication: VITAMIN SUPPLEMENTATION
  8. BIOTIN [Concomitant]
     Active Substance: BIOTIN
     Indication: ALOPECIA
  9. VITAMIN B12 [Concomitant]
     Active Substance: CYANOCOBALAMIN
     Indication: VITAMIN SUPPLEMENTATION
  10. FISH OIL [Concomitant]
     Active Substance: FISH OIL
     Indication: DRY EYE
  11. CALCIUM [Concomitant]
     Active Substance: CALCIUM
     Indication: OSTEOPENIA

REACTIONS (7)
  - Nasopharyngitis [Recovered/Resolved]
  - Upper limb fracture [Recovering/Resolving]
  - Device issue [Not Recovered/Not Resolved]
  - Fall [Recovered/Resolved]
  - Product physical consistency issue [Unknown]
  - Hand fracture [Recovering/Resolving]
  - Drug dose omission [Unknown]

NARRATIVE: CASE EVENT DATE: 201503
